FAERS Safety Report 20296908 (Version 2)
Quarter: 2025Q1

REPORT INFORMATION
  Report Type: Spontaneous
  Country: CA (occurrence: CA)
  Receive Date: 20220105
  Receipt Date: 20250317
  Transmission Date: 20250408
  Serious: Yes (Hospitalization, Other)
  Sender: SANOFI AVENTIS
  Company Number: CA-SA-SAC20211230000090

PATIENT
  Age: 64 Year
  Sex: Female

DRUGS (16)
  1. IRBESARTAN [Suspect]
     Active Substance: IRBESARTAN
     Dosage: 75 MG, QD
     Dates: end: 20200121
  2. IRBESARTAN [Suspect]
     Active Substance: IRBESARTAN
     Dates: start: 20200127
  3. ATORVASTATIN [Concomitant]
     Active Substance: ATORVASTATIN
     Dosage: 10 MG, QD
  4. CITALOPRAM [Concomitant]
     Active Substance: CITALOPRAM
  5. CLONAZEPAM [Concomitant]
     Active Substance: CLONAZEPAM
  6. DICYCLOMINE HYDROCHLORIDE [Concomitant]
     Active Substance: DICYCLOMINE HYDROCHLORIDE
  7. FLOVENT [Concomitant]
     Active Substance: FLUTICASONE PROPIONATE
  8. GLUCOPHAGE [Concomitant]
     Active Substance: METFORMIN HYDROCHLORIDE
     Dosage: 850 MG, BID
  9. HALDOL [Concomitant]
     Active Substance: HALOPERIDOL
  10. ONGLYZA [SAXAGLIPTIN] [Concomitant]
  11. PANTOPRAZOLE SODIUM [Concomitant]
     Active Substance: PANTOPRAZOLE SODIUM
     Dosage: 40 MG, QD
  12. PLAVIX [Concomitant]
     Active Substance: CLOPIDOGREL BISULFATE
     Dosage: 75 MG, QD
  13. SEROQUEL [Concomitant]
     Active Substance: QUETIAPINE FUMARATE
  14. SYNTHROID [Concomitant]
     Active Substance: LEVOTHYROXINE SODIUM
     Dosage: 150 UG, QD
  15. VENTOLIN [Concomitant]
     Active Substance: ALBUTEROL SULFATE
  16. VITAMIN B12 [Concomitant]
     Active Substance: CYANOCOBALAMIN

REACTIONS (3)
  - Syncope [Unknown]
  - Presyncope [Unknown]
  - Orthostatic hypotension [Unknown]

NARRATIVE: CASE EVENT DATE: 20200119
